FAERS Safety Report 7898445-0 (Version None)
Quarter: 2011Q4

REPORT INFORMATION
  Report Type: 
  Country: None (occurrence: None)
  Receive Date: 20111107
  Receipt Date: 20111027
  Transmission Date: 20120403
  Serious: Yes (Life-Threatening)
  Sender: FDA-Public Use
  Company Number: GB-SANOFI-AVENTIS-2011SA050505

PATIENT
  Age: 49 Year
  Sex: Female
  Weight: 83.7 kg

DRUGS (9)
  1. LEFLUNOMIDE [Suspect]
     Route: 048
     Dates: start: 20100107
  2. ACETAMINOPHEN [Concomitant]
  3. HARPAGOPHYTUM PROCUMBENS [Concomitant]
  4. LEFLUNOMIDE [Suspect]
     Route: 048
     Dates: start: 20031113
  5. ZOPICLONE [Concomitant]
  6. LANSOPRAZOLE [Concomitant]
  7. TRAMADOL HYDROCHLORIDE [Concomitant]
  8. CETIRIZINE HCL [Concomitant]
  9. ETODOLAC [Concomitant]

REACTIONS (2)
  - ARTHRALGIA [None]
  - RENAL CELL CARCINOMA STAGE III [None]
